FAERS Safety Report 6287526-3 (Version None)
Quarter: 2009Q3

REPORT INFORMATION
  Report Type: 
  Country: None (occurrence: None)
  Receive Date: 20090727
  Receipt Date: 20090715
  Transmission Date: 20100115
  Serious: Yes (Hospitalization)
  Sender: FDA-Public Use
  Company Number: 2008AL009101

PATIENT
  Age: 79 Year
  Sex: Female

DRUGS (11)
  1. DIGOXIN [Suspect]
     Indication: CARDIAC MURMUR
  2. COREG [Concomitant]
  3. ASPIRIN [Concomitant]
  4. SYNTHROID [Concomitant]
  5. PLAVIX [Concomitant]
  6. COLACE [Concomitant]
  7. LACTULOSE [Concomitant]
  8. COUMADIN [Concomitant]
  9. LEVTHYROXINE [Concomitant]
  10. DETROL [Concomitant]
  11. TRIGOSAMINE [Concomitant]

REACTIONS (14)
  - ABASIA [None]
  - CARDIAC FAILURE [None]
  - CARDIAC FAILURE CONGESTIVE [None]
  - DEHYDRATION [None]
  - DYSURIA [None]
  - EPISTAXIS [None]
  - HEART RATE IRREGULAR [None]
  - HYPOTENSION [None]
  - MALAISE [None]
  - PALPITATIONS [None]
  - RENAL DISORDER [None]
  - RENAL FAILURE ACUTE [None]
  - TACHYCARDIA [None]
  - TREMOR [None]
